FAERS Safety Report 6110943-9 (Version None)
Quarter: 2009Q1

REPORT INFORMATION
  Report Type: 
  Country: None (occurrence: None)
  Receive Date: 20090311
  Receipt Date: 20090116
  Transmission Date: 20090719
  Serious: Yes (Hospitalization)
  Sender: FDA-Public Use
  Company Number: FR-BRISTOL-MYERS SQUIBB COMPANY-14534127

PATIENT
  Age: 77 Year
  Sex: Female

DRUGS (3)
  1. FOZITEC TABS 10 MG [Suspect]
     Route: 048
     Dates: end: 20081002
  2. HEMIGOXINE NATIVELLE [Suspect]
     Indication: ATRIAL FIBRILLATION
     Dosage: HEMIGOXINE NATIVELLE TABS
     Route: 048
     Dates: end: 20081002
  3. LASIX [Suspect]
     Dosage: LASILIX 40MG TABS
     Route: 048
     Dates: end: 20081002

REACTIONS (5)
  - ANOREXIA [None]
  - CARDIOACTIVE DRUG LEVEL INCREASED [None]
  - DEHYDRATION [None]
  - MALNUTRITION [None]
  - RENAL FAILURE [None]
